FAERS Safety Report 4999942-8 (Version None)
Quarter: 2006Q2

REPORT INFORMATION
  Report Type: 
  Country: None (occurrence: None)
  Receive Date: 20060509
  Receipt Date: 20060427
  Transmission Date: 20061013
  Serious: Yes (Other)
  Sender: FDA-Public Use
  Company Number: DE200604004125

PATIENT
  Sex: Male

DRUGS (4)
  1. YENTREVE (DULOXETINE HYDROCHLORIDE) CAPSULE [Suspect]
     Indication: STRESS INCONTINENCE
     Dosage: 40 MG DAILY (1/D) ORAL
     Route: 048
     Dates: start: 20060101
  2. SIMVASTATIN [Concomitant]
  3. AMPICILLIN SODIUM AND SULBACTAM SODIUM [Concomitant]
  4. ASS ^CT-ARNZNEIMITTEL^ (ACETYLSALICYLIC ACID) [Concomitant]

REACTIONS (5)
  - DIPLOPIA [None]
  - DIZZINESS [None]
  - FATIGUE [None]
  - HETEROPHORIA [None]
  - SOMNOLENCE [None]
